FAERS Safety Report 11800616 (Version 3)
Quarter: 2016Q3

REPORT INFORMATION
  Report Type: Report from Study
  Country: US (occurrence: US)
  Receive Date: 20151204
  Receipt Date: 20160829
  Transmission Date: 20161109
  Serious: No
  Sender: FDA-Public Use
  Company Number: PHHY2015US056003

PATIENT
  Age: 52 Year
  Sex: Female

DRUGS (1)
  1. GILENYA [Suspect]
     Active Substance: FINGOLIMOD HYDROCHLORIDE
     Indication: MULTIPLE SCLEROSIS
     Route: 048

REACTIONS (19)
  - Pain in extremity [Unknown]
  - Concomitant disease aggravated [Unknown]
  - Alopecia [Unknown]
  - Balance disorder [Unknown]
  - Diarrhoea [Unknown]
  - Nausea [Unknown]
  - Contusion [Unknown]
  - Fall [Unknown]
  - Blood creatine increased [Unknown]
  - Rotator cuff syndrome [Recovered/Resolved]
  - Visual impairment [Unknown]
  - Paraesthesia [Unknown]
  - Lymphocyte count decreased [Unknown]
  - Headache [Unknown]
  - Fatigue [Unknown]
  - Arthralgia [Unknown]
  - Neutrophil count decreased [Unknown]
  - Asthenia [Unknown]
  - Eye pain [Unknown]

NARRATIVE: CASE EVENT DATE: 20141116
